FAERS Safety Report 6770264-8 (Version None)
Quarter: 2010Q2

REPORT INFORMATION
  Report Type: 
  Country: None (occurrence: None)
  Receive Date: 20100615
  Receipt Date: 20100609
  Transmission Date: 20101027
  Serious: Yes (Hospitalization)
  Sender: FDA-Public Use
  Company Number: DE-BRISTOL-MYERS SQUIBB COMPANY-15047392

PATIENT
  Age: 63 Year
  Sex: Female

DRUGS (3)
  1. CARBIDOPA + LEVODOPA [Suspect]
     Route: 048
  2. VITAMINS + MINERALS [Concomitant]
  3. REQUIP [Concomitant]

REACTIONS (3)
  - UTERINE DISORDER [None]
  - UTERINE POLYP [None]
  - VAGINAL DISORDER [None]
